FAERS Safety Report 9485841 (Version 1)
Quarter: 2013Q3

REPORT INFORMATION
  Report Type: Spontaneous
  Country: LB (occurrence: LB)
  Receive Date: 20130829
  Receipt Date: 20130829
  Transmission Date: 20140515
  Serious: Yes (Death, Other)
  Sender: FDA-Public Use
  Company Number: PHHY2013LB093036

PATIENT
  Age: 64 Year
  Sex: Female

DRUGS (3)
  1. ZOMETA [Suspect]
     Dosage: UNK
  2. CYCLOPHOSPHAMIDE [Suspect]
     Dosage: UNK
  3. ADRIAMYCIN [Suspect]
     Dosage: UNK UKN, UNK

REACTIONS (7)
  - Cardio-respiratory arrest [Fatal]
  - Pneumonia [Unknown]
  - Dyspnoea [Unknown]
  - Septic shock [Unknown]
  - Neutropenia [Unknown]
  - Urinary bladder haemorrhage [Recovering/Resolving]
  - Haematuria [Recovering/Resolving]
